FAERS Safety Report 7962602-5 (Version None)
Quarter: 2011Q4

REPORT INFORMATION
  Report Type: 
  Country: None (occurrence: None)
  Receive Date: 20111207
  Receipt Date: 20111206
  Transmission Date: 20120403
  Serious: Yes (Other)
  Sender: FDA-Public Use
  Company Number: US-PFIZER INC-2011298045

PATIENT
  Sex: Female

DRUGS (6)
  1. FENTANYL [Concomitant]
     Dosage: UNK
  2. FLEXERIL [Concomitant]
     Dosage: UNK
  3. PRISTIQ [Concomitant]
     Indication: NERVOUS SYSTEM DISORDER
     Dosage: UNK
  4. NORCO [Concomitant]
     Dosage: UNK, 3X/DAY
  5. NEURONTIN [Suspect]
     Indication: NERVE INJURY
     Dosage: 1200 MG, 2X/DAY
     Route: 048
  6. PERCOCET [Concomitant]
     Dosage: UNK

REACTIONS (3)
  - INJURY [None]
  - HOMICIDAL IDEATION [None]
  - BRAIN INJURY [None]
